FAERS Safety Report 18213217 (Version 1)
Quarter: 2020Q3

REPORT INFORMATION
  Report Type: Spontaneous
  Country: DE (occurrence: DE)
  Receive Date: 20200831
  Receipt Date: 20200831
  Transmission Date: 20201103
  Serious: Yes (Congenital Anomaly)
  Sender: FDA-Public Use
  Company Number: DE-TEVA-2020-DE-1820418

PATIENT
  Age: 0 Year
  Sex: Male

DRUGS (1)
  1. COPAXONE [Suspect]
     Active Substance: GLATIRAMER ACETATE
     Indication: MULTIPLE SCLEROSIS
     Dosage: THE SUSPECTED MEDICATION WAS TAKEN BY THE FATHER.
     Route: 065
     Dates: start: 20150801

REACTIONS (4)
  - Premature baby [Unknown]
  - Paternal exposure timing unspecified [Unknown]
  - Ichthyosis [Not Recovered/Not Resolved]
  - Live birth [Unknown]

NARRATIVE: CASE EVENT DATE: 201911
